FAERS Safety Report 7379867-3 (Version None)
Quarter: 2011Q1

REPORT INFORMATION
  Report Type: 
  Country: None (occurrence: None)
  Receive Date: 20110329
  Receipt Date: 20110315
  Transmission Date: 20110831
  Serious: Yes (Other)
  Sender: FDA-Public Use
  Company Number: US-JNJFOC-20110106107

PATIENT
  Sex: Male
  Weight: 91.63 kg

DRUGS (6)
  1. PREDNISONE [Concomitant]
     Route: 065
  2. FOLIC ACID [Concomitant]
     Route: 065
  3. IBUPROFEN [Concomitant]
     Route: 065
  4. METHOTREXATE [Concomitant]
     Route: 065
  5. ACETAMINOPHEN [Concomitant]
  6. REMICADE [Suspect]
     Indication: RHEUMATOID ARTHRITIS
     Dosage: PT. WAS NOT COMPLIANT TO MAINTENANCE DOSING, RECEIVED INFUSIONS SPORADICALLY.
     Route: 042

REACTIONS (5)
  - INFUSION RELATED REACTION [None]
  - DYSPNOEA [None]
  - RALES [None]
  - HYPERTENSION [None]
  - CHEST DISCOMFORT [None]
